FAERS Safety Report 7273382-3 (Version None)
Quarter: 2011Q1

REPORT INFORMATION
  Report Type: 
  Country: None (occurrence: None)
  Receive Date: 20110203
  Receipt Date: 20101116
  Transmission Date: 20110831
  Serious: No
  Sender: FDA-Public Use
  Company Number: US-ABBOTT-10P-163-0662602-00

PATIENT
  Sex: Female
  Weight: 62.198 kg

DRUGS (4)
  1. LEVOTHYROXINE [Suspect]
     Indication: HYPOTHYROIDISM
     Dates: start: 20010101, end: 20100601
  2. SYNTHROID [Suspect]
     Dates: start: 20100601
  3. SYNTHROID [Suspect]
     Indication: HYPOTHYROIDISM
     Dates: start: 19900101, end: 20010101
  4. LEVOTHYROXINE [Suspect]

REACTIONS (6)
  - VOMITING [None]
  - DIZZINESS [None]
  - DIARRHOEA [None]
  - ALOPECIA [None]
  - DRUG INEFFECTIVE [None]
  - NAUSEA [None]
